FAERS Safety Report 4750622-3 (Version None)
Quarter: 2005Q3

REPORT INFORMATION
  Report Type: 
  Country: None (occurrence: None)
  Receive Date: 20050823
  Receipt Date: 20050811
  Transmission Date: 20060218
  Serious: Yes (Death)
  Sender: FDA-Public Use
  Company Number: FR-ROCHE-413893

PATIENT
  Age: 27 Year
  Sex: Male

DRUGS (4)
  1. CELLCEPT [Suspect]
     Indication: DRUG USE FOR UNKNOWN INDICATION
     Route: 048
  2. BACTRIM [Suspect]
     Route: 048
  3. ZYVOXID [Suspect]
     Route: 042
  4. CIFLOX [Suspect]
     Route: 048

REACTIONS (3)
  - COMA [None]
  - RESPIRATORY DISTRESS [None]
  - RESPIRATORY SYNCYTIAL VIRUS INFECTION [None]
